FAERS Safety Report 6505624-3 (Version None)
Quarter: 2009Q4

REPORT INFORMATION
  Report Type: 
  Country: None (occurrence: None)
  Receive Date: 20091218
  Receipt Date: 20091204
  Transmission Date: 20100525
  Serious: Yes (Hospitalization)
  Sender: FDA-Public Use
  Company Number: FR-TEVA-218205ISR

PATIENT
  Age: 76 Year
  Sex: Male

DRUGS (8)
  1. TRAMADOL HCL [Suspect]
     Route: 048
     Dates: end: 20090828
  2. DIOVAN HCT [Concomitant]
  3. ROSUVASTATIN [Concomitant]
  4. METFORMIN EMBONATE [Concomitant]
  5. CHONDROITIN SULFATE SODIUM [Concomitant]
  6. METEOXANE [Concomitant]
  7. PINAVERIUM BROMIDE [Concomitant]
  8. GLICLAZIDE [Concomitant]

REACTIONS (3)
  - COMA [None]
  - CONFUSIONAL STATE [None]
  - MIOSIS [None]
